FAERS Safety Report 8407302-2 (Version None)
Quarter: 2012Q2

REPORT INFORMATION
  Report Type: 
  Country: None (occurrence: None)
  Receive Date: 20120604
  Receipt Date: 20120529
  Transmission Date: 20120825
  Serious: Yes (Other)
  Sender: FDA-Public Use
  Company Number: US-PFIZER INC-2012119153

PATIENT
  Sex: Male
  Weight: 68.1 kg

DRUGS (5)
  1. ACETYLSALICYLIC ACID [Concomitant]
     Indication: ANTICOAGULANT THERAPY
     Dosage: 325 MG, DAILY
  2. GLYBURIDE [Concomitant]
     Indication: BLOOD GLUCOSE ABNORMAL
     Dosage: HALF TABLET OF 1.25 MG, 2X/DAY
     Route: 048
  3. METOPROLOL [Concomitant]
     Indication: HEART RATE INCREASED
     Dosage: HALF TABLET OF 25 MG, 2X/DAY
     Route: 048
  4. LIPITOR [Suspect]
     Indication: BLOOD CHOLESTEROL ABNORMAL
     Dosage: 40 MG, DIALY
     Dates: start: 20110101
  5. LIPITOR [Suspect]
     Dosage: 80 MG, DAILY
     Dates: start: 20120201

REACTIONS (5)
  - TOTAL CHOLESTEROL/HDL RATIO ABNORMAL [None]
  - HIGH DENSITY LIPOPROTEIN ABNORMAL [None]
  - MUSCULOSKELETAL PAIN [None]
  - PAIN IN EXTREMITY [None]
  - MUSCLE SPASMS [None]
